FAERS Safety Report 21163583 (Version 2)
Quarter: 2022Q3

REPORT INFORMATION
  Report Type: Report from Study
  Country: TR (occurrence: TR)
  Receive Date: 20220802
  Receipt Date: 20220816
  Transmission Date: 20221026
  Serious: Yes (Death, Hospitalization)
  Sender: FDA-Public Use
  Company Number: TR-ABBVIE-22K-161-4252252-00

PATIENT
  Age: 83 Year
  Sex: Male
  Weight: 95 kg

DRUGS (7)
  1. CARBIDOPA\LEVODOPA [Suspect]
     Active Substance: CARBIDOPA\LEVODOPA
     Indication: Parkinson^s disease
     Dosage: MORNING DOSE (ML): 8.80 CONTINIOUS DOSE (ML): 2.60 EXTRA DOSE (ML): 0.50
     Route: 050
     Dates: start: 20191120
  2. CARBIDOPA\LEVODOPA [Suspect]
     Active Substance: CARBIDOPA\LEVODOPA
  3. ELIQUIS [Concomitant]
     Active Substance: APIXABAN
     Indication: Arrhythmia
     Dosage: 2.5 MG
     Route: 048
     Dates: start: 2018
  4. ALFUZOSIN [Concomitant]
     Active Substance: ALFUZOSIN
     Indication: Prophylaxis
     Route: 048
     Dates: start: 2016
  5. MODAFINIL [Concomitant]
     Active Substance: MODAFINIL
     Indication: Parkinson^s disease
     Route: 048
     Dates: start: 201912
  6. SEREX [Concomitant]
     Indication: Parkinson^s disease
     Route: 048
     Dates: start: 201912
  7. SARS-COV-2 VACCINE [Concomitant]
     Indication: COVID-19 immunisation
     Dosage: FIRST DOSE WAS ADMINISTERED
     Route: 030

REACTIONS (2)
  - Cerebral haemorrhage [Fatal]
  - Stoma site infection [Unknown]

NARRATIVE: CASE EVENT DATE: 20220121
